FAERS Safety Report 5154911-2 (Version None)
Quarter: 2006Q4

REPORT INFORMATION
  Report Type: 
  Country: None (occurrence: None)
  Receive Date: 20061121
  Receipt Date: 20061108
  Transmission Date: 20070319
  Serious: Yes (Hospitalization)
  Sender: FDA-Public Use
  Company Number: 2006PK02340

PATIENT
  Age: 73 Year
  Sex: Female
  Weight: 79.5 kg

DRUGS (12)
  1. NEXIUM [Suspect]
     Route: 048
  2. BELOC MITE [Interacting]
     Route: 048
  3. VENLAFAXINE HCL [Interacting]
     Route: 048
     Dates: start: 20050902, end: 20050909
  4. TOREM [Suspect]
     Route: 048
     Dates: end: 20050909
  5. DELIX PLUS [Suspect]
     Dosage: 5/12.5 MG
     Route: 048
     Dates: start: 20050902, end: 20050907
  6. DISALUNIL [Suspect]
     Route: 048
     Dates: start: 20050908, end: 20050909
  7. ASPIRIN [Concomitant]
     Route: 048
  8. GLUCOBAY [Concomitant]
     Route: 048
  9. ALLOPURINOL [Concomitant]
     Route: 048
  10. LOCOL [Concomitant]
     Route: 048
  11. LEVOTHYROXINE SODIUM [Concomitant]
     Route: 048
  12. CIPROFLOXACIN [Concomitant]
     Route: 048
     Dates: start: 20060907, end: 20060911

REACTIONS (4)
  - BLOOD PRESSURE DECREASED [None]
  - DRUG INTERACTION [None]
  - HYPOKALAEMIA [None]
  - HYPONATRAEMIA [None]
